FAERS Safety Report 14874531 (Version 2)
Quarter: 2018Q2

REPORT INFORMATION
  Report Type: Spontaneous
  Country: TR (occurrence: TR)
  Receive Date: 20180510
  Receipt Date: 20180618
  Transmission Date: 20180711
  Serious: Yes (Other)
  Sender: FDA-Public Use
  Company Number: TR-BAYER-2018-078191

PATIENT
  Sex: Female
  Weight: 64 kg

DRUGS (1)
  1. BETAFERON [Suspect]
     Active Substance: INTERFERON BETA-1B
     Indication: MULTIPLE SCLEROSIS
     Dosage: UNK UNK, QOD
     Route: 058
     Dates: start: 2011, end: 20180416

REACTIONS (5)
  - Multiple sclerosis [None]
  - Drug dose omission [Recovered/Resolved]
  - Feeling abnormal [Recovered/Resolved]
  - Device malfunction [Not Recovered/Not Resolved]
  - Facial paralysis [None]

NARRATIVE: CASE EVENT DATE: 2011
